FAERS Safety Report 15883436 (Version 1)
Quarter: 2019Q1

REPORT INFORMATION
  Report Type: Spontaneous
  Country: GB (occurrence: GB)
  Receive Date: 20190129
  Receipt Date: 20190129
  Transmission Date: 20190417
  Serious: Yes (Hospitalization, Disabling, Other)
  Sender: FDA-Public Use
  Company Number: GB-ACCORD-103548

PATIENT
  Age: 52 Year
  Sex: Female
  Weight: 69.85 kg

DRUGS (3)
  1. SERTRALINE [Suspect]
     Active Substance: SERTRALINE HYDROCHLORIDE
     Indication: ANXIETY
     Dosage: ALSO RECEIVED AS 100 MG DOSE, ACTION TAKEN- DOSE REDUCED.
     Route: 048
  2. DIAZEPAM. [Concomitant]
     Active Substance: DIAZEPAM
  3. MIRTAZAPINE. [Concomitant]
     Active Substance: MIRTAZAPINE

REACTIONS (13)
  - Depression [Unknown]
  - Paraesthesia [Unknown]
  - Withdrawal syndrome [Unknown]
  - Nausea [Unknown]
  - Condition aggravated [Unknown]
  - Abdominal discomfort [Unknown]
  - Crying [Unknown]
  - Psychogenic seizure [Not Recovered/Not Resolved]
  - Anxiety [Unknown]
  - Suicidal ideation [Unknown]
  - Lethargy [Unknown]
  - Headache [Unknown]
  - Muscle twitching [Recovering/Resolving]

NARRATIVE: CASE EVENT DATE: 20180210
